FAERS Safety Report 25756280 (Version 5)
Quarter: 2025Q4

REPORT INFORMATION
  Report Type: Report from Study
  Country: JP (occurrence: JP)
  Receive Date: 20250903
  Receipt Date: 20251120
  Transmission Date: 20260117
  Serious: Yes (Hospitalization)
  Sender: UCB
  Company Number: JP-UCBJ-CD202511246UCBPHAPROD

PATIENT
  Sex: Male
  Weight: 85.2 kg

DRUGS (41)
  1. RYSTIGGO [Suspect]
     Active Substance: ROZANOLIXIZUMAB-NOLI
     Indication: Myasthenia gravis
     Dosage: 560 MILLIGRAM, WEEKLY (QW)
     Dates: start: 20240411, end: 20240516
  2. RYSTIGGO [Suspect]
     Active Substance: ROZANOLIXIZUMAB-NOLI
     Dosage: 420 MILLIGRAM, WEEKLY (QW)
     Dates: start: 20240530
  3. RYSTIGGO [Suspect]
     Active Substance: ROZANOLIXIZUMAB-NOLI
     Dosage: 560 MILLIGRAM, WEEKLY (QW)
     Dates: start: 20240620, end: 20240725
  4. RYSTIGGO [Suspect]
     Active Substance: ROZANOLIXIZUMAB-NOLI
     Dosage: 560 MILLIGRAM, WEEKLY (QW)
     Dates: start: 20240822, end: 20240822
  5. RYSTIGGO [Suspect]
     Active Substance: ROZANOLIXIZUMAB-NOLI
     Dosage: 560 MILLIGRAM, WEEKLY (QW)
     Dates: start: 20240912, end: 20241017
  6. RYSTIGGO [Suspect]
     Active Substance: ROZANOLIXIZUMAB-NOLI
     Dosage: 560 MILLIGRAM, WEEKLY (QW)
     Dates: start: 20241107, end: 20241212
  7. RYSTIGGO [Suspect]
     Active Substance: ROZANOLIXIZUMAB-NOLI
     Dosage: 560 MILLIGRAM, WEEKLY (QW)
     Dates: start: 20250109, end: 20250213
  8. RYSTIGGO [Suspect]
     Active Substance: ROZANOLIXIZUMAB-NOLI
     Dosage: 560 MILLIGRAM, WEEKLY (QW)
     Dates: start: 20250327, end: 20250501
  9. KENKETSU VENOGLOBULIN-IH [Concomitant]
     Indication: Myasthenia gravis
     Dosage: 20000 MILLIGRAM (DAILY)
     Dates: start: 20240418, end: 20240418
  10. KENKETSU VENOGLOBULIN-IH [Concomitant]
     Dosage: 20000 MILLIGRAM (DAILY)
     Dates: start: 20240516, end: 20240516
  11. KENKETSU VENOGLOBULIN-IH [Concomitant]
     Dosage: 33000 MILLIGRAM (DAILY)
     Dates: start: 20240827, end: 20240831
  12. SOLU-MEDROL [Concomitant]
     Active Substance: METHYLPREDNISOLONE SODIUM SUCCINATE
     Indication: Myasthenia gravis
     Dosage: 1000 MILLIGRAM (DAILY)
  13. SOLU-MEDROL [Concomitant]
     Active Substance: METHYLPREDNISOLONE SODIUM SUCCINATE
     Dosage: 1000 MILLIGRAM (DAILY)
     Dates: start: 20240529, end: 20240529
  14. SOLU-MEDROL [Concomitant]
     Active Substance: METHYLPREDNISOLONE SODIUM SUCCINATE
     Dosage: 20000 MILLIGRAM (DAILY)
     Dates: start: 20240718, end: 20240718
  15. SOLU-MEDROL [Concomitant]
     Active Substance: METHYLPREDNISOLONE SODIUM SUCCINATE
     Dosage: 1000 MILLIGRAM (DAILY)
     Dates: start: 20240725, end: 20240725
  16. SOLU-MEDROL [Concomitant]
     Active Substance: METHYLPREDNISOLONE SODIUM SUCCINATE
     Dosage: 1000 MILLIGRAM (DAILY)
     Dates: start: 20240822, end: 20240822
  17. SOLU-MEDROL [Concomitant]
     Active Substance: METHYLPREDNISOLONE SODIUM SUCCINATE
     Dosage: 1000 MILLIGRAM (DAILY)
     Dates: start: 20241024, end: 20241024
  18. SOLU-MEDROL [Concomitant]
     Active Substance: METHYLPREDNISOLONE SODIUM SUCCINATE
     Dosage: 1000 MILLIGRAM (DAILY)
     Dates: start: 20241226, end: 20241226
  19. PREDONINE [Concomitant]
     Active Substance: PREDNISOLONE
     Indication: Myasthenia gravis
     Dosage: 10 MILLIGRAM (DAILY)
  20. PREDONINE [Concomitant]
     Active Substance: PREDNISOLONE
     Dosage: 7.5 MILLIGRAM DAILY
  21. PREDONINE [Concomitant]
     Active Substance: PREDNISOLONE
     Dosage: 7 MILLIGRAM (DAILY)
     Dates: start: 20240627, end: 20240827
  22. PREDONINE [Concomitant]
     Active Substance: PREDNISOLONE
     Dosage: 5 MILLIGRAM (DAILY)
  23. TACROLIMUS [Concomitant]
     Active Substance: TACROLIMUS
     Indication: Myasthenia gravis
     Dosage: 3 MILLIGRAM (DAILY)
  24. TACROLIMUS [Concomitant]
     Active Substance: TACROLIMUS
     Dosage: 2 MILLIGRAM (DAILY)
  25. MESTINON [Concomitant]
     Active Substance: PYRIDOSTIGMINE BROMIDE
     Indication: Myasthenia gravis
     Dosage: 180 MILLIGRAM (DAILY)
  26. MESTINON [Concomitant]
     Active Substance: PYRIDOSTIGMINE BROMIDE
     Dosage: 120 MILLIGRAM (DAILY)
  27. MIYA-BM [Concomitant]
     Active Substance: CLOSTRIDIUM BUTYRICUM SPORES STRAIN M-55
     Indication: Prophylaxis
     Dosage: UNK (DAILY)
  28. ALENDRONATE [Concomitant]
     Active Substance: ALENDRONATE SODIUM
     Indication: Prophylaxis
     Dosage: 35 MILLIGRAM (DAILY)
  29. LOPEMIN [Concomitant]
     Indication: Prophylaxis
     Dosage: 1 MILLIGRAM (DAILY)
  30. INDERAL [Concomitant]
     Active Substance: PROPRANOLOL HYDROCHLORIDE
     Indication: Product used for unknown indication
     Dosage: 10 MILLIGRAM (DAILY)
  31. DAPAGLIFLOZIN [Concomitant]
     Active Substance: DAPAGLIFLOZIN
     Indication: Product used for unknown indication
     Dosage: 10 MILLIGRAM (DAILY)
  32. RYBELSUS [Concomitant]
     Active Substance: SEMAGLUTIDE
     Indication: Product used for unknown indication
     Dosage: 3 MILLIGRAM (DAILY)
  33. FEBUXOSTAT [Concomitant]
     Active Substance: FEBUXOSTAT
     Indication: Product used for unknown indication
     Dosage: 40 MILLIGRAM (DAILY)
     Dates: start: 20240831, end: 20240904
  34. VONOPRAZAN FUMARATE [Concomitant]
     Active Substance: VONOPRAZAN FUMARATE
     Indication: Prophylaxis
     Dosage: 10 MILLIGRAM (DAILY)
     Dates: start: 20240828, end: 20240904
  35. DAYVIGO [Concomitant]
     Active Substance: LEMBOREXANT
     Indication: Prophylaxis
     Dosage: 5 MILLIGRAM (DAILY)
     Dates: start: 20240828, end: 20240904
  36. RAMELTEON [Concomitant]
     Active Substance: RAMELTEON
     Indication: Product used for unknown indication
     Dosage: 8 MILLIGRAM (DAILY)
     Dates: start: 20240828, end: 20240904
  37. PEMAFIBRATE [Concomitant]
     Active Substance: PEMAFIBRATE
     Indication: Product used for unknown indication
     Dosage: 0.2 MILLIGRAM (DAILY)
     Dates: start: 20240828, end: 20240904
  38. AZILSARTAN KAMEDOXOMIL [Concomitant]
     Active Substance: AZILSARTAN KAMEDOXOMIL
     Indication: Product used for unknown indication
     Dosage: 10 MILLIGRAM (DAILY)
     Dates: start: 20240828, end: 20240904
  39. PROPRANOLOL HYDROCHLORIDE [Concomitant]
     Active Substance: PROPRANOLOL HYDROCHLORIDE
     Indication: Product used for unknown indication
     Dosage: 10 MILLIGRAM (DAILY)
     Dates: start: 20240828, end: 20240904
  40. LOPERAMIDE [Concomitant]
     Active Substance: LOPERAMIDE
     Indication: Prophylaxis
     Dosage: 1 MILLIGRAM (DAILY)
     Dates: start: 20240828, end: 20240904
  41. AMLODIPINE [Concomitant]
     Active Substance: AMLODIPINE BESYLATE
     Indication: Product used for unknown indication
     Dosage: 5 MILLIGRAM (DAILY)
     Dates: start: 20240828, end: 20240904

REACTIONS (3)
  - Pneumonia [Recovering/Resolving]
  - Diarrhoea [Not Recovered/Not Resolved]
  - Bronchitis [Unknown]

NARRATIVE: CASE EVENT DATE: 20240101
